FAERS Safety Report 25362446 (Version 1)
Quarter: 2025Q2

REPORT INFORMATION
  Report Type: Spontaneous
  Country: US (occurrence: US)
  Receive Date: 20250527
  Receipt Date: 20250527
  Transmission Date: 20250717
  Serious: Yes (Other)
  Sender: MYLAN
  Company Number: US-MYLANLABS-2025M1042954

PATIENT
  Age: 7 Decade
  Sex: Male

DRUGS (12)
  1. POSACONAZOLE [Interacting]
     Active Substance: POSACONAZOLE
     Indication: Antifungal prophylaxis
  2. POSACONAZOLE [Interacting]
     Active Substance: POSACONAZOLE
     Route: 065
  3. POSACONAZOLE [Interacting]
     Active Substance: POSACONAZOLE
     Route: 065
  4. POSACONAZOLE [Interacting]
     Active Substance: POSACONAZOLE
  5. PACRITINIB [Interacting]
     Active Substance: PACRITINIB
     Indication: Myelofibrosis
     Dosage: 100 MILLIGRAM, BID
  6. PACRITINIB [Interacting]
     Active Substance: PACRITINIB
     Indication: Myelodysplastic syndrome
     Dosage: 100 MILLIGRAM, BID
  7. PACRITINIB [Interacting]
     Active Substance: PACRITINIB
     Dosage: 100 MILLIGRAM, BID
     Route: 065
  8. PACRITINIB [Interacting]
     Active Substance: PACRITINIB
     Dosage: 100 MILLIGRAM, BID
     Route: 065
  9. PACRITINIB [Interacting]
     Active Substance: PACRITINIB
     Dosage: 100 MILLIGRAM, QD
  10. PACRITINIB [Interacting]
     Active Substance: PACRITINIB
     Dosage: 100 MILLIGRAM, QD
  11. PACRITINIB [Interacting]
     Active Substance: PACRITINIB
     Dosage: 100 MILLIGRAM, QD
     Route: 065
  12. PACRITINIB [Interacting]
     Active Substance: PACRITINIB
     Dosage: 100 MILLIGRAM, QD
     Route: 065

REACTIONS (5)
  - Neutropenia [Unknown]
  - Drug interaction [Not Recovered/Not Resolved]
  - Dyspnoea [Not Recovered/Not Resolved]
  - Cough [Not Recovered/Not Resolved]
  - Oedema peripheral [Not Recovered/Not Resolved]
